FAERS Safety Report 17299309 (Version 1)
Quarter: 2020Q1

REPORT INFORMATION
  Report Type: Spontaneous
  Country: FR (occurrence: FR)
  Receive Date: 20200121
  Receipt Date: 20200121
  Transmission Date: 20200409
  Serious: Yes (Other)
  Sender: FDA-Public Use
  Company Number: FR-009507513-2001FRA004957

PATIENT
  Age: 53 Year
  Sex: Female
  Weight: 76.5 kg

DRUGS (11)
  1. BROMAZEPAM [Suspect]
     Active Substance: BROMAZEPAM
     Indication: DEPRESSION
     Dosage: 9 MILLIGRAM, QD
     Route: 048
     Dates: end: 20191128
  2. SULFARLEM [Suspect]
     Active Substance: ANETHOLTRITHION
     Dosage: 100 MILLIGRAM, QD
     Route: 048
     Dates: start: 20191101, end: 20191128
  3. PHENERGAN (DIBROMPROPAMIDINE ISETHIONATE (+) PROMETHAZINE) [Suspect]
     Active Substance: DIBROMPROPAMIDINE ISETHIONATE\PROMETHAZINE HYDROCHLORIDE
     Dosage: 50 MILLIGRAM, QD
     Route: 048
     Dates: start: 20191101, end: 20191128
  4. NORSET [Suspect]
     Active Substance: MIRTAZAPINE
     Indication: AFFECTIVE DISORDER
     Dosage: 7.5 MILLIGRAM, QD
     Route: 048
     Dates: end: 20191123
  5. FORLAX [Suspect]
     Active Substance: POLYETHYLENE GLYCOL 4000
     Dosage: 6 DOSAGE FORM, QD, POWDER FOR ORAL SOLUTION IN SINGLE-DOSE SACHET
     Route: 048
     Dates: start: 20191107, end: 20191128
  6. OESTRODOSE [Concomitant]
     Active Substance: ESTRADIOL
     Dosage: 1 DOSAGE FORM, QD
     Route: 003
  7. LUBENTYL [Suspect]
     Active Substance: MINERAL OIL
     Dosage: 3 DOSAGE FORM, QD
     Route: 048
     Dates: start: 20191114, end: 20191128
  8. NOCTAMIDE [Suspect]
     Active Substance: LORMETAZEPAM
     Dosage: 1 DOSAGE FORM, QD
     Route: 048
     Dates: end: 20191128
  9. ESTIMA (PROGESTERONE) [Concomitant]
     Active Substance: PROGESTERONE
     Dosage: 1 DOSAGE FORM, QD, VAGINAL OR ORAL SOFT CAPSULE
     Route: 048
  10. SERESTA [Concomitant]
     Active Substance: OXAZEPAM
     Indication: DEPRESSION
     Dosage: 105 MILLIGRAM, QD
     Route: 048
     Dates: start: 20191128, end: 20191201
  11. VENLAFAXINE HYDROCHLORIDE. [Suspect]
     Active Substance: VENLAFAXINE HYDROCHLORIDE
     Indication: AFFECTIVE DISORDER
     Dosage: 150 MILLIGRAM, QD
     Route: 048
     Dates: start: 20191029, end: 20191128

REACTIONS (1)
  - Hepatocellular injury [Recovering/Resolving]

NARRATIVE: CASE EVENT DATE: 20191127
